FAERS Safety Report 4768796-7 (Version None)
Quarter: 2005Q3

REPORT INFORMATION
  Report Type: 
  Country: None (occurrence: None)
  Receive Date: 20050914
  Receipt Date: 20050906
  Transmission Date: 20060218
  Serious: Yes (Hospitalization)
  Sender: FDA-Public Use
  Company Number: US-ABBOTT-05P-163-0310370-00

PATIENT
  Sex: Female
  Weight: 72.64 kg

DRUGS (7)
  1. HUMIRA [Suspect]
     Indication: RHEUMATOID ARTHRITIS
     Route: 058
     Dates: start: 20040901, end: 20050601
  2. LANSOPRAZOLE [Concomitant]
     Indication: DYSPEPSIA
     Route: 048
     Dates: start: 20050601
  3. KLOR-CON [Concomitant]
     Indication: MINERAL SUPPLEMENTATION
     Route: 048
     Dates: start: 20050601
  4. MAGNESIUM [Concomitant]
     Indication: MINERAL SUPPLEMENTATION
     Route: 048
     Dates: start: 20050601
  5. METOPROLOL [Concomitant]
     Indication: BLOOD PRESSURE
     Route: 048
     Dates: start: 20050601
  6. ATORVASTATIN [Concomitant]
     Indication: BLOOD CHOLESTEROL
     Route: 048
  7. FLUCONAZOLE [Concomitant]
     Indication: DRUG USE FOR UNKNOWN INDICATION
     Route: 048
     Dates: start: 20050601

REACTIONS (6)
  - DEHYDRATION [None]
  - HAEMORRHAGE [None]
  - INTRA-ABDOMINAL HAEMORRHAGE [None]
  - PNEUMONIA [None]
  - RENAL FAILURE [None]
  - SEPSIS [None]
